FAERS Safety Report 6390563-1 (Version None)
Quarter: 2009Q4

REPORT INFORMATION
  Report Type: 
  Country: None (occurrence: None)
  Receive Date: 20091003
  Receipt Date: 20090918
  Transmission Date: 20100525
  Serious: Yes (Other)
  Sender: FDA-Public Use
  Company Number: ENTC2009-0285

PATIENT
  Sex: Male

DRUGS (1)
  1. STALEVO 100 [Suspect]

REACTIONS (2)
  - ASTHMA [None]
  - CONDITION AGGRAVATED [None]
